FAERS Safety Report 6912882-X (Version None)
Quarter: 2010Q3

REPORT INFORMATION
  Report Type: 
  Country: None (occurrence: None)
  Receive Date: 20100806
  Receipt Date: 20090316
  Transmission Date: 20110219
  Serious: Yes (Other)
  Sender: FDA-Public Use
  Company Number: US-PFIZER INC-2009156569

PATIENT
  Sex: Female
  Weight: 65.77 kg

DRUGS (7)
  1. VFEND [Suspect]
     Indication: FUNGAL INFECTION
     Dosage: 200 MG, 2X/DAY
     Route: 048
     Dates: start: 20090109, end: 20090110
  2. VFEND [Suspect]
     Indication: BRONCHIECTASIS
  3. VFEND [Suspect]
     Indication: PRODUCTIVE COUGH
  4. PROTONIX [Concomitant]
     Dosage: UNK
  5. ZOCOR [Concomitant]
     Dosage: UNK
  6. BENICAR HCT [Concomitant]
     Dosage: UNK
  7. COUMADIN [Concomitant]
     Dosage: UNK

REACTIONS (2)
  - DELIRIUM [None]
  - HALLUCINATION, VISUAL [None]
